FAERS Safety Report 9620330 (Version 1)
Quarter: 2013Q4

REPORT INFORMATION
  Report Type: Spontaneous
  Country: US (occurrence: US)
  Receive Date: 20131014
  Receipt Date: 20131014
  Transmission Date: 20140711
  Serious: No
  Sender: FDA-Public Use
  Company Number: US-ALLERGAN-1214675US

PATIENT
  Age: 83 Year
  Sex: Female

DRUGS (5)
  1. ALPHAGAN [Suspect]
     Indication: GLAUCOMA
  2. COSOPT                             /01419801/ [Concomitant]
     Indication: PRODUCT USED FOR UNKNOWN INDICATION
  3. SYNTHROID [Concomitant]
     Indication: PRODUCT USED FOR UNKNOWN INDICATION
  4. ASA [Concomitant]
     Indication: PRODUCT USED FOR UNKNOWN INDICATION
     Dosage: 81 MG, UNK
  5. IRBESARTAN [Concomitant]
     Indication: HYPERTENSION

REACTIONS (3)
  - Eczema eyelids [Unknown]
  - Eczema [Unknown]
  - Ocular hyperaemia [Unknown]
